FAERS Safety Report 7457295-X (Version None)
Quarter: 2011Q2

REPORT INFORMATION
  Report Type: 
  Country: None (occurrence: None)
  Receive Date: 20110502
  Receipt Date: 20110502
  Transmission Date: 20111010
  Serious: Yes (Life-Threatening, Hospitalization, Disabling)
  Sender: FDA-Public Use
  Company Number: None

PATIENT
  Sex: Female
  Weight: 54.4316 kg

DRUGS (1)
  1. SEROQUEL XR [Suspect]
     Indication: BIPOLAR DISORDER
     Dosage: 300 MG 1 DAY ORAL
     Route: 048

REACTIONS (5)
  - BIPOLAR DISORDER [None]
  - TYPE 2 DIABETES MELLITUS [None]
  - HYPERTENSION [None]
  - HEADACHE [None]
  - DRUG WITHDRAWAL SYNDROME [None]
